FAERS Safety Report 11318059 (Version 2)
Quarter: 2015Q3

REPORT INFORMATION
  Report Type: Spontaneous
  Country: US (occurrence: US)
  Receive Date: 20150728
  Receipt Date: 20150821
  Transmission Date: 20151125
  Serious: Yes (Hospitalization, Other)
  Sender: FDA-Public Use
  Company Number: US-GLAXOSMITHKLINE-US2015107300

PATIENT
  Sex: Male

DRUGS (5)
  1. HYDROCODONE [Concomitant]
     Active Substance: HYDROCODONE
  2. ADVAIR DISKUS [Suspect]
     Active Substance: FLUTICASONE PROPIONATE\SALMETEROL XINAFOATE
     Indication: ASTHMA
     Dosage: 1 PUFF(S), BID
     Route: 055
     Dates: start: 2000, end: 20150615
  3. NAPROXEN. [Concomitant]
     Active Substance: NAPROXEN
  4. FLONASE [Concomitant]
     Active Substance: FLUTICASONE PROPIONATE
  5. GABAPENTIN. [Concomitant]
     Active Substance: GABAPENTIN

REACTIONS (11)
  - Exostosis [Not Recovered/Not Resolved]
  - Nervous system disorder [Unknown]
  - Cerebrospinal fluid leakage [Unknown]
  - Arthropathy [Not Recovered/Not Resolved]
  - Intervertebral disc protrusion [Not Recovered/Not Resolved]
  - Underdose [Recovered/Resolved]
  - Radiculopathy [Not Recovered/Not Resolved]
  - Spinal column stenosis [Not Recovered/Not Resolved]
  - Spinal nerve stimulator implantation [Not Recovered/Not Resolved]
  - Nerve injury [Unknown]
  - Neck surgery [Recovered/Resolved]

NARRATIVE: CASE EVENT DATE: 2015
